FAERS Safety Report 7663295-7 (Version None)
Quarter: 2011Q3

REPORT INFORMATION
  Report Type: 
  Country: None (occurrence: None)
  Receive Date: 20110805
  Receipt Date: 20100812
  Transmission Date: 20111222
  Serious: No
  Sender: FDA-Public Use
  Company Number: US-ABBOTT-10P-163-0664048-00

PATIENT
  Sex: Female
  Weight: 72.64 kg

DRUGS (11)
  1. ASPIRIN [Concomitant]
     Indication: PRODUCT USED FOR UNKNOWN INDICATION
     Dates: end: 20100810
  2. METOPROLOL TARTRATE [Concomitant]
     Indication: PRODUCT USED FOR UNKNOWN INDICATION
  3. DIAZEPAM [Concomitant]
     Indication: PRODUCT USED FOR UNKNOWN INDICATION
  4. NIASPAN [Suspect]
     Indication: HIGH DENSITY LIPOPROTEIN DECREASED
     Dosage: WITH SUPPER
     Dates: start: 20100729
  5. DONNATAL [Concomitant]
     Indication: PRODUCT USED FOR UNKNOWN INDICATION
  6. BENICAR [Concomitant]
     Indication: PRODUCT USED FOR UNKNOWN INDICATION
  7. PLAVIX [Concomitant]
     Indication: PRODUCT USED FOR UNKNOWN INDICATION
  8. ASPIRIN [Concomitant]
     Dates: start: 20100810
  9. PEPCID [Concomitant]
     Indication: PRODUCT USED FOR UNKNOWN INDICATION
  10. PRAVASTATIN [Concomitant]
     Indication: PRODUCT USED FOR UNKNOWN INDICATION
  11. ISOSORBID [Concomitant]
     Indication: PRODUCT USED FOR UNKNOWN INDICATION

REACTIONS (5)
  - EXCORIATION [None]
  - ARTHRALGIA [None]
  - EPISTAXIS [None]
  - FALL [None]
  - CONTUSION [None]
